FAERS Safety Report 18161144 (Version 1)
Quarter: 2020Q3

REPORT INFORMATION
  Report Type: Spontaneous
  Country: US (occurrence: US)
  Receive Date: 20200817
  Receipt Date: 20200817
  Transmission Date: 20201103
  Serious: No
  Sender: FDA-Public Use
  Company Number: US-AKRON, INC.-2088714

PATIENT
  Age: 71 Year
  Sex: Male

DRUGS (1)
  1. LIDOCAINE HCL ORAL SOLUTION [Suspect]
     Active Substance: LIDOCAINE HYDROCHLORIDE
     Dates: start: 2018

REACTIONS (1)
  - Drug ineffective [Recovered/Resolved]
